FAERS Safety Report 25612928 (Version 1)
Quarter: 2025Q3

REPORT INFORMATION
  Report Type: Spontaneous
  Country: US (occurrence: None)
  Receive Date: 20250726
  Receipt Date: 20250726
  Transmission Date: 20251020
  Serious: Yes (Hospitalization, Disabling)
  Sender: FDA-CTU
  Company Number: None

PATIENT
  Age: 56 Year
  Sex: Female
  Weight: 65.25 kg

DRUGS (2)
  1. CITALOPRAM [Suspect]
     Active Substance: CITALOPRAM
     Indication: Major depression
     Dosage: FREQUENCY : DAILY;?
     Route: 048
     Dates: start: 20050731
  2. One-a-Day Womens multi vitamin [Concomitant]

REACTIONS (12)
  - Withdrawal syndrome [None]
  - Dizziness [None]
  - Balance disorder [None]
  - Electric shock sensation [None]
  - Derealisation [None]
  - Depersonalisation/derealisation disorder [None]
  - Crying [None]
  - Head discomfort [None]
  - Decreased appetite [None]
  - Weight decreased [None]
  - Abdominal pain upper [None]
  - Akathisia [None]

NARRATIVE: CASE EVENT DATE: 20100930
